FAERS Safety Report 23814940 (Version 1)
Quarter: 2024Q2

REPORT INFORMATION
  Report Type: Spontaneous
  Country: FR (occurrence: FR)
  Receive Date: 20240503
  Receipt Date: 20240503
  Transmission Date: 20240716
  Serious: Yes (Hospitalization, Other)
  Sender: FDA-Public Use
  Company Number: FR-AFSSAPS-TO2024000670

PATIENT
  Age: 99 Year
  Sex: Male
  Weight: 67.3 kg

DRUGS (11)
  1. RISPERIDONE [Suspect]
     Active Substance: RISPERIDONE
     Indication: Behaviour disorder
     Dosage: 0.5 MILLILITER, ONCE A DAY
     Route: 048
     Dates: start: 20230601, end: 20230901
  2. ZOPICLONE [Suspect]
     Active Substance: ZOPICLONE
     Indication: Product used for unknown indication
     Dosage: 3.75 MILLIGRAM, ONCE A DAY (LONG COURSE)
     Route: 048
     Dates: end: 20230901
  3. OXAZEPAM [Suspect]
     Active Substance: OXAZEPAM
     Indication: Anxiety
     Dosage: 20 MG PAR JOUR ET 50 MG PAR JOUR SI BESOIN
     Route: 048
     Dates: end: 20230901
  4. MIANSERIN HYDROCHLORIDE [Suspect]
     Active Substance: MIANSERIN HYDROCHLORIDE
     Indication: Product used for unknown indication
     Dosage: LONG COURS
     Route: 048
     Dates: end: 20230901
  5. HERBALS\SAW PALMETTO [Concomitant]
     Active Substance: HERBALS\SAW PALMETTO
  6. LACTULOSE [Concomitant]
     Active Substance: LACTULOSE
  7. NEBIVOLOL [Concomitant]
     Active Substance: NEBIVOLOL
  8. MICONAZOLE NITRATE [Concomitant]
     Active Substance: MICONAZOLE NITRATE
  9. VALIUM [Suspect]
     Active Substance: DIAZEPAM
     Indication: Anxiety
     Dosage: LONG COURS
     Route: 048
     Dates: end: 20230901
  10. ACETAMINOPHEN [Concomitant]
     Active Substance: ACETAMINOPHEN
  11. AMLODIPINE BESYLATE [Concomitant]
     Active Substance: AMLODIPINE BESYLATE

REACTIONS (1)
  - Coma [Recovered/Resolved]

NARRATIVE: CASE EVENT DATE: 20230901
